FAERS Safety Report 4724403-0 (Version None)
Quarter: 2005Q3

REPORT INFORMATION
  Report Type: 
  Country: None (occurrence: None)
  Receive Date: 20050722
  Receipt Date: 20050713
  Transmission Date: 20060218
  Serious: Yes (Other)
  Sender: FDA-Public Use
  Company Number: CHNY2005JP01344

PATIENT

DRUGS (1)
  1. NICOTINE [Suspect]
     Indication: SMOKING CESSATION THERAPY
     Dosage: SINGLE APPLICATION, TRANSDERMAL
     Route: 062

REACTIONS (4)
  - BLOOD PRESSURE DECREASED [None]
  - NAUSEA [None]
  - SYNCOPE [None]
  - VOMITING [None]
